FAERS Safety Report 7878372-5 (Version None)
Quarter: 2011Q4

REPORT INFORMATION
  Report Type: 
  Country: None (occurrence: None)
  Receive Date: 20111028
  Receipt Date: 20111017
  Transmission Date: 20120403
  Serious: Yes (Other)
  Sender: FDA-Public Use
  Company Number: NO-ACCORD-011118

PATIENT

DRUGS (8)
  1. CYCLOPHOSPHAMIDE [Suspect]
     Indication: HODGKIN'S DISEASE
     Dosage: 650.00-MG/M2/ INTRAVENOUS (NOT OTHERWISE SPECIFIED)
     Route: 042
  2. ETOPOSIDE [Suspect]
     Indication: HODGKIN'S DISEASE
     Dosage: 100.00-MG/M2 / INTRAVENOUS (NOT OTHERWISE SPECIFIED)
     Route: 042
  3. DOXORUBICIN HCL [Suspect]
     Indication: HODGKIN'S DISEASE
     Dosage: 25.00 MG/M2/ INTRAVENOUS (NOT OTHERWISE SPECIFIED)
     Route: 042
  4. PROCARBAZINE HYDROCHLORIDE [Suspect]
     Indication: HODGKIN'S DISEASE
     Dosage: 100.00-MG/M2/ ORAL
     Route: 048
  5. PREDNISOLONE [Suspect]
     Indication: HODGKIN'S DISEASE
     Dosage: 40.00-MG/M2/ ORAL
     Route: 048
  6. BLEOMYCIN SULFATE [Suspect]
     Indication: HODGKIN'S DISEASE
     Dosage: 10000.00-LU/ INTRAVENOUS (NOT OTHERWISE SPECIFIED)
     Route: 042
  7. VINCRISTINE [Suspect]
     Indication: HODGKIN'S DISEASE
     Dosage: 1.40-MG/M2 / INTRAVENOUS (NOT OTHERWISE SPECIFIED)
     Route: 042
  8. G-CSF (G-CSF) [Suspect]
     Indication: HODGKIN'S DISEASE

REACTIONS (2)
  - HERPES ZOSTER [None]
  - OFF LABEL USE [None]
